FAERS Safety Report 5076097-5 (Version None)
Quarter: 2006Q3

REPORT INFORMATION
  Report Type: 
  Country: None (occurrence: None)
  Receive Date: 20060804
  Receipt Date: 20060731
  Transmission Date: 20061208
  Serious: Yes (Other)
  Sender: FDA-Public Use
  Company Number: HQWYE156727DEC05

PATIENT
  Age: 73 Year
  Sex: Female

DRUGS (6)
  1. RALOXIFENE, CONTROL FOR BAZEDOXIFENE ACETATE       (RALOXIFENE, CONTRO [Suspect]
     Indication: OSTEOPOROSIS
     Dosage: 60 MG, ORAL
     Route: 048
     Dates: start: 20030313, end: 20051222
  2. BECLOMETHASONE DIPROPIONATE [Concomitant]
  3. DIPYRONE     (METAMIZOLE SODIUM) [Concomitant]
  4. ADIPHENINE         (ADIPHENINE) [Concomitant]
  5. PROMETHAZINE [Concomitant]
  6. DICLOFENAC POTASSIUM [Concomitant]

REACTIONS (1)
  - ENDOMETRIAL CANCER [None]
